FAERS Safety Report 14879152 (Version 2)
Quarter: 2018Q2

REPORT INFORMATION
  Report Type: Spontaneous
  Country: FR (occurrence: FR)
  Receive Date: 20180511
  Receipt Date: 20180531
  Transmission Date: 20180711
  Serious: Yes (Other)
  Sender: FDA-Public Use
  Company Number: FR-AUROBINDO-AUR-APL-2018-024540

PATIENT
  Age: 86 Year
  Sex: Female
  Weight: 61 kg

DRUGS (5)
  1. MIRTAZAPINE ARROW [Suspect]
     Active Substance: MIRTAZAPINE
     Indication: ADJUSTMENT DISORDER WITH DEPRESSED MOOD
     Dosage: 30 MILLIGRAM, ONCE A DAY
     Route: 048
     Dates: start: 20180220, end: 20180321
  2. FRAGMINE [Suspect]
     Active Substance: DALTEPARIN SODIUM
     Indication: EMBOLISM
     Dosage: 30 MILLIGRAM, ONCE A DAY
     Route: 058
     Dates: start: 20180314
  3. SERESTA [Concomitant]
     Active Substance: OXAZEPAM
     Indication: ANXIETY
     Dosage: 10 MILLIGRAM, ONCE A DAY
     Route: 048
     Dates: start: 20180220
  4. LOXAPAC                            /00401801/ [Suspect]
     Active Substance: LOXAPINE
     Indication: PSYCHOTIC DISORDER
     Dosage: 15 GTT, ONCE A DAY
     Route: 048
     Dates: start: 20180226
  5. IMOVANE [Concomitant]
     Active Substance: ZOPICLONE
     Indication: INSOMNIA
     Dosage: 3.75 MILLIGRAM, ONCE A DAY
     Route: 048
     Dates: start: 20180220

REACTIONS (1)
  - Leukopenia [Not Recovered/Not Resolved]

NARRATIVE: CASE EVENT DATE: 20180320
